FAERS Safety Report 8736505 (Version 6)
Quarter: 2022Q2

REPORT INFORMATION
  Report Type: Other
  Country: FR (occurrence: FR)
  Receive Date: 20120822
  Receipt Date: 20220419
  Transmission Date: 20220721
  Serious: Yes (Death, Hospitalization)
  Sender: FDA-Public Use
  Company Number: FR-ROCHE-1104732

PATIENT
  Age: 34 Year
  Sex: Male

DRUGS (10)
  1. VALIUM [Suspect]
     Active Substance: DIAZEPAM
     Indication: Bipolar disorder
     Route: 048
     Dates: start: 201206, end: 20120625
  2. QUETIAPINE FUMARATE [Suspect]
     Active Substance: QUETIAPINE FUMARATE
     Indication: Bipolar disorder
     Dosage: DRUG REPORTED AS XEROQUEL
     Route: 048
     Dates: start: 20120605, end: 20120625
  3. VALPROIC ACID [Suspect]
     Active Substance: VALPROIC ACID
     Indication: Bipolar disorder
     Route: 065
  4. LOXAPINE [Suspect]
     Active Substance: LOXAPINE
     Indication: Bipolar disorder
     Dosage: PLUS 100 DROPS WHEN NEEDED
     Route: 048
     Dates: start: 20120614, end: 20120625
  5. LOXAPINE [Suspect]
     Active Substance: LOXAPINE
     Dosage: 275 PLUS 100 MG ; AS REQUIRED
     Route: 048
     Dates: start: 20120614
  6. LOXAPINE [Suspect]
     Active Substance: LOXAPINE
     Route: 048
     Dates: start: 20120614
  7. VALPROATE SODIUM [Suspect]
     Active Substance: VALPROATE SODIUM
     Indication: Bipolar disorder
     Route: 048
     Dates: start: 201206, end: 20120625
  8. MORPHINE [Suspect]
     Active Substance: MORPHINE
     Indication: Abdominal pain
     Route: 042
     Dates: start: 20120625
  9. TRAMADOL [Suspect]
     Active Substance: TRAMADOL
     Indication: Abdominal pain
     Route: 065
     Dates: start: 20120625
  10. TROPATEPINE HYDROCHLORIDE [Suspect]
     Active Substance: TROPATEPINE HYDROCHLORIDE
     Indication: Bipolar disorder
     Route: 048
     Dates: start: 20120605, end: 20120625

REACTIONS (3)
  - Intestinal ischaemia [Fatal]
  - Intestinal obstruction [Fatal]
  - Gastrointestinal necrosis [Fatal]

NARRATIVE: CASE EVENT DATE: 20120623
